FAERS Safety Report 9820021 (Version 1)
Quarter: 2013Q3

REPORT INFORMATION
  Report Type: Spontaneous
  Country: US (occurrence: None)
  Receive Date: 20130924
  Receipt Date: 20130924
  Transmission Date: 20140515
  Serious: Yes (Other)
  Sender: FDA-Public Use
  Company Number: 2013000256

PATIENT
  Age: 56 Year
  Sex: Female
  Weight: 67.1 kg

DRUGS (9)
  1. OSPHENA [Suspect]
     Indication: DYSPAREUNIA
     Route: 048
     Dates: start: 20130806, end: 20130821
  2. VAGIFEM (ESTRADIOL) [Concomitant]
  3. ATENOLOL (ATENOLOL) [Concomitant]
  4. ATORVASTATIN (ATORVASTATIN) [Concomitant]
  5. CELEXA (CITALOPRAM HYDROBROMIDE) [Concomitant]
  6. FISH OIL (FISH OIL) [Concomitant]
  7. B12 (CYANOCOBALAMIN) [Concomitant]
  8. FOLIC ACID (FOLIC ACID) [Concomitant]
  9. CALCIUM (CALCIUM) [Concomitant]

REACTIONS (1)
  - Enuresis [None]
